FAERS Safety Report 18051206 (Version 1)
Quarter: 2020Q3

REPORT INFORMATION
  Report Type: Spontaneous
  Country: DE (occurrence: DE)
  Receive Date: 20200721
  Receipt Date: 20200721
  Transmission Date: 20201103
  Serious: Yes (Other)
  Sender: FDA-Public Use
  Company Number: DE-PFIZER INC-2020276572

PATIENT
  Age: 24 Year
  Sex: Female
  Weight: 76 kg

DRUGS (3)
  1. QUETIAPIN [Concomitant]
     Active Substance: QUETIAPINE
     Dosage: 100 MG, DAILY
     Dates: start: 20200121
  2. SERTRALINE HCL [Suspect]
     Active Substance: SERTRALINE HYDROCHLORIDE
     Dosage: 150 MG, DAILY
     Dates: start: 20200121
  3. PIPAMPERON NEURAXPHARM [Concomitant]
     Active Substance: PIPAMPERONE HYDROCHLORIDE
     Dosage: 20 MG, DAILY
     Dates: start: 20200220

REACTIONS (6)
  - Self-injurious ideation [Unknown]
  - Restlessness [Unknown]
  - Nausea [Unknown]
  - Suicidal ideation [Unknown]
  - Headache [Unknown]
  - Decreased appetite [Unknown]

NARRATIVE: CASE EVENT DATE: 20200705
